FAERS Safety Report 15545522 (Version 1)
Quarter: 2018Q4

REPORT INFORMATION
  Report Type: Spontaneous
  Country: US (occurrence: US)
  Receive Date: 20181023
  Receipt Date: 20181023
  Transmission Date: 20190205
  Serious: Yes (Disabling, Other)
  Sender: FDA-Public Use
  Company Number: None

PATIENT
  Age: 55 Year
  Sex: Female
  Weight: 109.8 kg

DRUGS (8)
  1. MELOXICAM. [Concomitant]
     Active Substance: MELOXICAM
  2. FLUTICASONE PROPIONATE NASAL SPRAY USP 50MG [Suspect]
     Active Substance: FLUTICASONE PROPIONATE
     Indication: DYSPNOEA
     Dosage: ?          OTHER STRENGTH:1 SPRAY PER NOSTRI;QUANTITY:1 SPRAY(S);OTHER ROUTE:SPRAY IN NOSTRILS?
     Dates: start: 20171214, end: 20180414
  3. HYDROLAZINE [Concomitant]
  4. CALCIUM PLUS VITAMIN D3 [Concomitant]
  5. B1 [Concomitant]
  6. BACLOFEN. [Concomitant]
     Active Substance: BACLOFEN
  7. OXYCODONE [Concomitant]
     Active Substance: OXYCODONE
  8. FLUTICASONE PROPIONATE NASAL SPRAY USP 50MG [Suspect]
     Active Substance: FLUTICASONE PROPIONATE
     Indication: HYPERSENSITIVITY
     Dosage: ?          OTHER STRENGTH:1 SPRAY PER NOSTRI;QUANTITY:1 SPRAY(S);OTHER ROUTE:SPRAY IN NOSTRILS?
     Dates: start: 20171214, end: 20180414

REACTIONS (4)
  - Nasal discomfort [None]
  - Instillation site haemorrhage [None]
  - Instillation site irritation [None]
  - Epistaxis [None]

NARRATIVE: CASE EVENT DATE: 20171214
